FAERS Safety Report 6188355-1 (Version None)
Quarter: 2009Q2

REPORT INFORMATION
  Report Type: 
  Country: None (occurrence: None)
  Receive Date: 20090513
  Receipt Date: 20090504
  Transmission Date: 20091009
  Serious: Yes (Other)
  Sender: FDA-Public Use
  Company Number: ES-B.I. PHARMACEUTICALS,INC./RIDGEFIELD-2008-ES-00692ES

PATIENT
  Age: 64 Year
  Sex: Male

DRUGS (1)
  1. MOVALIS 15MG [Suspect]
     Indication: BACK PAIN
     Dosage: 15MG
     Route: 048
     Dates: start: 20080110, end: 20080228

REACTIONS (1)
  - AUTOIMMUNE HEPATITIS [None]
